FAERS Safety Report 13988448 (Version 2)
Quarter: 2017Q4

REPORT INFORMATION
  Report Type: Spontaneous
  Country: JP (occurrence: JP)
  Receive Date: 20170919
  Receipt Date: 20171020
  Transmission Date: 20180321
  Serious: Yes (Hospitalization)
  Sender: FDA-Public Use
  Company Number: JP-PFIZER INC-2017402788

PATIENT
  Sex: Female
  Weight: 2.87 kg

DRUGS (3)
  1. FOSPHENYTOIN SODIUM. [Suspect]
     Active Substance: FOSPHENYTOIN SODIUM
     Indication: EPILEPSY
     Dosage: UNK
     Route: 064
  2. DIAZEPAM. [Concomitant]
     Active Substance: DIAZEPAM
     Indication: EPILEPSY
     Dosage: UNK
     Route: 064
  3. LEVETIRACETAM. [Concomitant]
     Active Substance: LEVETIRACETAM
     Indication: EPILEPSY
     Dosage: UNK
     Route: 064

REACTIONS (3)
  - Tachypnoea [Recovered/Resolved]
  - C-reactive protein increased [Unknown]
  - Maternal exposure during delivery [Unknown]
